FAERS Safety Report 4334896-9 (Version None)
Quarter: 2004Q2

REPORT INFORMATION
  Report Type: 
  Country: None (occurrence: None)
  Receive Date: 20040405
  Receipt Date: 20040330
  Transmission Date: 20050107
  Serious: Yes (Death, Life-Threatening)
  Sender: FDA-Public Use
  Company Number: 2004197482JP

PATIENT
  Age: 76 Year
  Sex: Male
  Weight: 53 kg

DRUGS (8)
  1. CABERGOLINE [Suspect]
     Indication: PARKINSON'S DISEASE
     Dosage: 1 MG DAILY, ORAL
     Route: 048
     Dates: start: 20040112, end: 20040119
  2. MADOPAR (BENSERAZIDE HYDROCHLORIDE) [Concomitant]
  3. HARNAL (TAMSULOSIN HYDROCHLORIDE) [Concomitant]
  4. UBRETID (DISTIGMINE BROMIDE) [Concomitant]
  5. ASPIRIN [Concomitant]
  6. MUCOSTA (REBAMIPIDE) [Concomitant]
  7. FAMOTIDINE [Concomitant]
  8. TERNELIN (TIZANIDINE HYDROCHLORIDE) [Concomitant]

REACTIONS (3)
  - ASPIRATION [None]
  - HICCUPS [None]
  - INTERSTITIAL LUNG DISEASE [None]
